FAERS Safety Report 21283171 (Version 2)
Quarter: 2022Q3

REPORT INFORMATION
  Report Type: Report from Study
  Country: US (occurrence: US)
  Receive Date: 20220901
  Receipt Date: 20220916
  Transmission Date: 20221027
  Serious: Yes (Other)
  Sender: FDA-Public Use
  Company Number: US-TEVA-2022-US-2070490

PATIENT
  Sex: Female

DRUGS (2)
  1. PACLITAXEL [Suspect]
     Active Substance: PACLITAXEL
     Indication: Ovarian epithelial cancer
     Dosage: 80 MG/M2 PTX WEEKLY ON DAYS 1, 8, AND 15 IN 28 DAY CYCLES
     Route: 065
  2. ACETYL-LYS-PRO-SER-SER-PRO-PRO-GLU-GLU-NH2 [Concomitant]
     Active Substance: ACETYL-LYS-PRO-SER-SER-PRO-PRO-GLU-GLU-NH2
     Indication: Ovarian epithelial cancer
     Dosage: 150 MG ADMINISTERED EITHER ONE TIME OR TWO TIMES PER DAY.
     Route: 058

REACTIONS (1)
  - Peripheral sensory neuropathy [Unknown]
